FAERS Safety Report 18267493 (Version 2)
Quarter: 2020Q4

REPORT INFORMATION
  Report Type: Spontaneous
  Country: US (occurrence: US)
  Receive Date: 20200915
  Receipt Date: 20201224
  Transmission Date: 20210113
  Serious: No
  Sender: FDA-Public Use
  Company Number: US-LUPIN PHARMACEUTICALS INC.-2020-05137

PATIENT
  Sex: Female
  Weight: 122.47 kg

DRUGS (2)
  1. DESVENLAFAXINE. [Suspect]
     Active Substance: DESVENLAFAXINE
     Indication: DEPRESSION
     Dosage: 100 MILLIGRAM, QD
     Route: 065
  2. DESVENLAFAXINE. [Suspect]
     Active Substance: DESVENLAFAXINE
     Indication: ANXIETY

REACTIONS (1)
  - Drug ineffective [Unknown]
